FAERS Safety Report 14766641 (Version 1)
Quarter: 2018Q2

REPORT INFORMATION
  Report Type: Spontaneous
  Country: US (occurrence: US)
  Receive Date: 20180416
  Receipt Date: 20180416
  Transmission Date: 20180711
  Serious: No
  Sender: FDA-Public Use
  Company Number: US-BIOGEN-2015BI146107

PATIENT
  Age: 45 Year
  Sex: Female

DRUGS (1)
  1. PLEGRIDY [Suspect]
     Active Substance: PEGINTERFERON BETA-1A
     Indication: MULTIPLE SCLEROSIS
     Route: 030
     Dates: start: 20150727, end: 20151205

REACTIONS (13)
  - Depressed mood [Recovered/Resolved]
  - Injection site urticaria [Not Recovered/Not Resolved]
  - Weight increased [Recovered/Resolved]
  - Injection site erythema [Recovered/Resolved]
  - Swelling [Not Recovered/Not Resolved]
  - Device malfunction [Unknown]
  - Anxiety [Recovered/Resolved]
  - Emotional disorder [Not Recovered/Not Resolved]
  - Drug dose omission [Unknown]
  - Feeling abnormal [Not Recovered/Not Resolved]
  - Drug ineffective [Unknown]
  - Frustration tolerance decreased [Unknown]
  - Rash macular [Not Recovered/Not Resolved]

NARRATIVE: CASE EVENT DATE: 20150727
